FAERS Safety Report 9538691 (Version 1)
Quarter: 2013Q3

REPORT INFORMATION
  Report Type: Report from Study
  Country: MX (occurrence: MX)
  Receive Date: 20130920
  Receipt Date: 20130920
  Transmission Date: 20140515
  Serious: Yes (Hospitalization, Other)
  Sender: FDA-Public Use
  Company Number: PHHY2013MX104317

PATIENT
  Age: 70 Year
  Sex: Female

DRUGS (1)
  1. DIOVAN [Suspect]
     Indication: HYPERTENSION
     Dosage: 160 MG, BID
     Route: 048
     Dates: start: 20120713

REACTIONS (7)
  - Arterial disorder [Recovered/Resolved]
  - Fibromyalgia [Unknown]
  - Osteoarthritis [Unknown]
  - Glaucoma [Unknown]
  - Fatigue [Not Recovered/Not Resolved]
  - Headache [Not Recovered/Not Resolved]
  - Malaise [Unknown]
